FAERS Safety Report 26089989 (Version 2)
Quarter: 2025Q4

REPORT INFORMATION
  Report Type: Report from Study
  Country: US (occurrence: US)
  Receive Date: 20251126
  Receipt Date: 20251204
  Transmission Date: 20260117
  Serious: Yes (Other)
  Sender: ABBVIE
  Company Number: US-ABBVIE-6563409

PATIENT
  Age: 85 Year
  Sex: Male
  Weight: 94 kg

DRUGS (14)
  1. LINZESS [Suspect]
     Active Substance: LINACLOTIDE
     Indication: Constipation
     Dosage: FORM STRENGTH: 290 MICROGRAM
     Route: 048
     Dates: start: 202401
  2. DORZOLAMIDE HYDROCHLORIDE [Concomitant]
     Active Substance: DORZOLAMIDE HYDROCHLORIDE
     Indication: Diabetic retinopathy
  3. METFORMIN [Concomitant]
     Active Substance: METFORMIN HYDROCHLORIDE
     Indication: Diabetes mellitus
  4. INSULIN LISPRO [Concomitant]
     Active Substance: INSULIN LISPRO
     Indication: Diabetes mellitus
  5. SYSTANE (HYPROMELLOSE 2910 (4000 MPA.S)) [Concomitant]
     Active Substance: HYPROMELLOSE 2910 (4000 MPA.S)
     Indication: Product used for unknown indication
  6. TIMOLOL MALEATE [Concomitant]
     Active Substance: TIMOLOL MALEATE
     Indication: Product used for unknown indication
  7. ATORVASTATIN [Concomitant]
     Active Substance: ATORVASTATIN
     Indication: Blood cholesterol increased
  8. MIDODRINE [Concomitant]
     Active Substance: MIDODRINE
     Indication: Hypotension
  9. XARELTO [Concomitant]
     Active Substance: RIVAROXABAN
     Indication: Anticoagulant therapy
  10. BIMATOPROST [Concomitant]
     Active Substance: BIMATOPROST
     Indication: Diabetic retinopathy
  11. VITAMIN D [Concomitant]
     Active Substance: VITAMIN D NOS
     Indication: Product used for unknown indication
  12. MEMANTINE HYDROCHLORIDE [Concomitant]
     Active Substance: MEMANTINE HYDROCHLORIDE
     Indication: Dementia Alzheimer^s type
  13. LEXAPRO [Concomitant]
     Active Substance: ESCITALOPRAM OXALATE
     Indication: Depression
  14. LEVOTHYROXINE [Concomitant]
     Active Substance: LEVOTHYROXINE
     Indication: Hypothyroidism

REACTIONS (3)
  - Blindness [Not Recovered/Not Resolved]
  - Dementia [Not Recovered/Not Resolved]
  - Diabetic retinopathy [Not Recovered/Not Resolved]

NARRATIVE: CASE EVENT DATE: 20240101
